FAERS Safety Report 5483622-9 (Version None)
Quarter: 2007Q4

REPORT INFORMATION
  Report Type: 
  Country: None (occurrence: None)
  Receive Date: 20071012
  Receipt Date: 20070906
  Transmission Date: 20080405
  Serious: Yes (Hospitalization)
  Sender: FDA-Public Use
  Company Number: JP-ASTRAZENECA-2007SE05432

PATIENT
  Sex: Female
  Weight: 41 kg

DRUGS (7)
  1. BLOPRESS TABLETS 4 [Suspect]
     Indication: CARDIAC FAILURE
     Route: 048
     Dates: start: 20060209, end: 20070827
  2. FAMOTIDINE [Concomitant]
     Indication: GASTRITIS
     Route: 048
     Dates: start: 20070216, end: 20070820
  3. DOGMATYL [Concomitant]
     Indication: ANTIDEPRESSANT THERAPY
     Route: 048
  4. FUROSEMIDE [Concomitant]
     Indication: DIURETIC THERAPY
     Route: 048
     Dates: start: 20070209
  5. ALDACTONE [Concomitant]
     Indication: DIURETIC THERAPY
     Route: 048
     Dates: start: 20070209, end: 20070821
  6. BISOPROLOL FUMARATE [Concomitant]
     Indication: CARDIAC FAILURE
     Route: 048
     Dates: start: 20040315
  7. ASPIRIN [Concomitant]
     Route: 048
     Dates: start: 20040315, end: 20070811

REACTIONS (1)
  - PLATELET COUNT DECREASED [None]
